FAERS Safety Report 4510131-3 (Version None)
Quarter: 2004Q4

REPORT INFORMATION
  Report Type: 
  Country: None (occurrence: None)
  Receive Date: 20041124
  Receipt Date: 20041116
  Transmission Date: 20050328
  Serious: Yes (Other)
  Sender: FDA-Public Use
  Company Number: JP-JNJFOC-20041005203

PATIENT
  Sex: Male
  Weight: 52.35 kg

DRUGS (18)
  1. REMICADE [Suspect]
     Route: 042
  2. REMICADE [Suspect]
     Route: 042
  3. REMICADE [Suspect]
     Indication: RHEUMATOID ARTHRITIS
     Route: 042
  4. RHEUMATREX [Suspect]
     Route: 049
  5. RHEUMATREX [Suspect]
     Indication: RHEUMATOID ARTHRITIS
     Route: 049
  6. PREDONINE [Suspect]
     Route: 049
  7. PREDONINE [Suspect]
     Indication: RHEUMATOID ARTHRITIS
     Route: 049
  8. VOLTAREN [Concomitant]
     Route: 049
  9. FOLIAMIN [Concomitant]
     Route: 049
  10. CYTOTEC [Concomitant]
     Route: 049
  11. GRIMAC [Concomitant]
     Route: 049
  12. GRIMAC [Concomitant]
     Route: 049
  13. DEPAS [Concomitant]
     Route: 049
  14. ALFAROL [Concomitant]
     Route: 049
  15. BONALON [Concomitant]
     Route: 049
  16. FASTIC [Concomitant]
     Route: 049
  17. FERROMIA [Concomitant]
     Route: 049
  18. AZULENE SULFONATE SODIUM [Concomitant]
     Route: 049

REACTIONS (5)
  - BLOOD BETA-D-GLUCAN INCREASED [None]
  - BRONCHITIS [None]
  - CANDIDIASIS [None]
  - PULMONARY MYCOSIS [None]
  - SPUTUM CULTURE POSITIVE [None]
